FAERS Safety Report 13302340 (Version 3)
Quarter: 2017Q3

REPORT INFORMATION
  Report Type: Report from Study
  Country: CA (occurrence: CA)
  Receive Date: 20170307
  Receipt Date: 20170719
  Transmission Date: 20171127
  Serious: Yes (Other)
  Sender: FDA-Public Use
  Company Number: CA-GLAXOSMITHKLINE-CA2017GSK008621

PATIENT
  Sex: Male

DRUGS (8)
  1. MEPOLIZUMAB [Suspect]
     Active Substance: MEPOLIZUMAB
     Indication: ASTHMA
     Dosage: 100 MG, Z
     Route: 042
     Dates: start: 20160908
  2. MEPOLIZUMAB [Suspect]
     Active Substance: MEPOLIZUMAB
     Dosage: 100 MG, Z
     Route: 042
     Dates: start: 20170227
  3. MEPOLIZUMAB [Suspect]
     Active Substance: MEPOLIZUMAB
     Dosage: UNK
     Dates: start: 20170613
  4. MEPOLIZUMAB [Suspect]
     Active Substance: MEPOLIZUMAB
     Dosage: 100 MG, Z
     Route: 042
  5. VENTOLIN [Suspect]
     Active Substance: ALBUTEROL SULFATE
     Indication: PRODUCT USED FOR UNKNOWN INDICATION
     Dosage: UNK UNK, QD, 10 TO 15 PUFFS
  6. MEPOLIZUMAB [Suspect]
     Active Substance: MEPOLIZUMAB
     Dosage: 100 MG, Z
     Route: 042
     Dates: start: 20170124
  7. MEPOLIZUMAB [Suspect]
     Active Substance: MEPOLIZUMAB
     Dosage: UNK
     Dates: start: 20170418
  8. MEPOLIZUMAB [Suspect]
     Active Substance: MEPOLIZUMAB
     Dosage: UNK
     Dates: start: 20170516

REACTIONS (7)
  - Lung abscess [Recovering/Resolving]
  - Drug ineffective [Unknown]
  - Cough [Not Recovered/Not Resolved]
  - Dyspnoea [Unknown]
  - Overdose [Unknown]
  - Pneumonia [Recovering/Resolving]
  - Influenza [Unknown]
